FAERS Safety Report 4639215-6 (Version None)
Quarter: 2005Q2

REPORT INFORMATION
  Report Type: 
  Country: None (occurrence: None)
  Receive Date: 20050419
  Receipt Date: 20020412
  Transmission Date: 20051028
  Serious: Yes (Other)
  Sender: FDA-Public Use
  Company Number: PHEH2002US03518

PATIENT
  Age: 77 Year
  Sex: Female

DRUGS (5)
  1. LAMISIL [Suspect]
     Indication: NAIL TINEA
     Dosage: 250 MG, QD
     Route: 048
     Dates: start: 20011201, end: 20011201
  2. PROZAC [Concomitant]
  3. KLONOPIN [Concomitant]
  4. TRAZODONE HCL [Concomitant]
  5. INDERAL [Concomitant]

REACTIONS (10)
  - ALOPECIA [None]
  - ANOREXIA [None]
  - ERYTHEMA MULTIFORME [None]
  - INSOMNIA [None]
  - PRURITUS [None]
  - RASH ERYTHEMATOUS [None]
  - SKIN EXFOLIATION [None]
  - SWELLING [None]
  - TREMOR [None]
  - WEIGHT DECREASED [None]
